FAERS Safety Report 7823256-1 (Version None)
Quarter: 2011Q4

REPORT INFORMATION
  Report Type: 
  Country: None (occurrence: None)
  Receive Date: 20111013
  Receipt Date: 20110927
  Transmission Date: 20120403
  Serious: Yes (Death, Hospitalization, Other)
  Sender: FDA-Public Use
  Company Number: 2011MA014510

PATIENT
  Age: 20 Year
  Sex: Male

DRUGS (6)
  1. AMOXICILLIN [Suspect]
     Indication: OVERDOSE
  2. ERYTHROMYCIN [Suspect]
     Indication: OVERDOSE
  3. IRON (IRON) [Suspect]
     Indication: OVERDOSE
  4. LOPERAMIDE [Suspect]
     Indication: OVERDOSE
  5. TRICYCLIC ANTIDEPRESSANTS (TRICYCLIC ANTIDEPRESSANTS) [Concomitant]
  6. FEVERALL [Suspect]
     Indication: OVERDOSE

REACTIONS (12)
  - LIVER INJURY [None]
  - SEPSIS [None]
  - PUPILLARY DISORDER [None]
  - ASPARTATE AMINOTRANSFERASE INCREASED [None]
  - AMMONIA INCREASED [None]
  - TOXICITY TO VARIOUS AGENTS [None]
  - BLOOD LACTIC ACID INCREASED [None]
  - BRAIN HERNIATION [None]
  - HEPATIC NECROSIS [None]
  - MULTIPLE DRUG OVERDOSE [None]
  - CHOLESTASIS [None]
  - BRAIN OEDEMA [None]
